FAERS Safety Report 16514205 (Version 5)
Quarter: 2019Q4

REPORT INFORMATION
  Report Type: Spontaneous
  Country: JP (occurrence: JP)
  Receive Date: 20190702
  Receipt Date: 20191010
  Transmission Date: 20200122
  Serious: Yes (Other)
  Sender: FDA-Public Use
  Company Number: JP-PFIZER INC-2019269446

PATIENT
  Age: 96 Year
  Sex: Male
  Weight: 37 kg

DRUGS (2)
  1. JZOLOFT OD [Suspect]
     Active Substance: SERTRALINE HYDROCHLORIDE
     Dosage: 50 MG, 1X/DAY
     Route: 048
     Dates: start: 20190618, end: 20190620
  2. JZOLOFT OD [Suspect]
     Active Substance: SERTRALINE HYDROCHLORIDE
     Indication: DEPRESSION
     Dosage: 25 MG, 1X/DAY
     Route: 048
     Dates: start: 20190530, end: 20190617

REACTIONS (15)
  - Glomerular filtration rate decreased [Unknown]
  - Haemoglobin decreased [Unknown]
  - Mean cell volume abnormal [Not Recovered/Not Resolved]
  - Water intoxication [Recovered/Resolved]
  - Condition aggravated [Unknown]
  - C-reactive protein increased [Not Recovered/Not Resolved]
  - Red blood cell count decreased [Recovering/Resolving]
  - Neutrophil count increased [Recovering/Resolving]
  - Low density lipoprotein decreased [Not Recovered/Not Resolved]
  - Blood creatinine increased [Unknown]
  - Polyuria [Recovered/Resolved]
  - Blood sodium decreased [Unknown]
  - Mean cell haemoglobin decreased [Unknown]
  - Lymphocyte count decreased [Recovering/Resolving]
  - White blood cell count increased [Recovering/Resolving]

NARRATIVE: CASE EVENT DATE: 20190603
